FAERS Safety Report 10225052 (Version 3)
Quarter: 2014Q2

REPORT INFORMATION
  Report Type: Report from Study
  Country: JP (occurrence: JP)
  Receive Date: 20140609
  Receipt Date: 20140613
  Transmission Date: 20141212
  Serious: Yes (Death, Life-Threatening, Hospitalization)
  Sender: FDA-Public Use
  Company Number: PHHY2011JP94326

PATIENT
  Age: 34 Year
  Sex: Male

DRUGS (27)
  1. LEPONEX / CLOZARIL [Suspect]
     Indication: SCHIZOPHRENIA
     Dosage: 12.5 MG, UNK
     Route: 048
     Dates: start: 20110810, end: 20110810
  2. LEPONEX / CLOZARIL [Suspect]
     Indication: SCHIZOPHRENIA, PARANOID TYPE
     Dosage: 25 MG, UNK
     Route: 048
     Dates: start: 20110811, end: 20110813
  3. LEPONEX / CLOZARIL [Suspect]
     Dosage: 50 MG, UNK
     Route: 048
     Dates: start: 20110814, end: 20110816
  4. LEPONEX / CLOZARIL [Suspect]
     Dosage: 75 MG, UNK
     Route: 048
     Dates: start: 20110817, end: 20110818
  5. LEPONEX / CLOZARIL [Suspect]
     Dosage: 100 MG, UNK
     Route: 048
     Dates: start: 20110819, end: 20110820
  6. LEPONEX / CLOZARIL [Suspect]
     Dosage: 125 MG, UNK
     Route: 048
     Dates: start: 20110821, end: 20110823
  7. LEPONEX / CLOZARIL [Suspect]
     Dosage: 150 MG, UNK
     Route: 048
     Dates: start: 20110824, end: 20110826
  8. LEPONEX / CLOZARIL [Suspect]
     Dosage: 175 MG, UNK
     Route: 048
     Dates: start: 20110827, end: 20110829
  9. LEPONEX / CLOZARIL [Suspect]
     Dosage: 200 MG, UNK
     Route: 048
     Dates: start: 20110830, end: 20110902
  10. LEPONEX / CLOZARIL [Suspect]
     Dosage: 250 MG, UNK
     Route: 048
     Dates: start: 20110903, end: 20110906
  11. LEPONEX / CLOZARIL [Suspect]
     Dosage: 300 MG, UNK
     Route: 048
     Dates: start: 20110907, end: 20110910
  12. LEPONEX / CLOZARIL [Suspect]
     Dosage: 350 MG, UNK
     Route: 048
     Dates: start: 20110911, end: 20110914
  13. LEPONEX / CLOZARIL [Suspect]
     Dosage: 400 MG, UNK
     Route: 048
     Dates: start: 20110915, end: 20110920
  14. LEPONEX / CLOZARIL [Suspect]
     Dosage: 450 MG, UNK
     Route: 048
     Dates: start: 20110921, end: 20110924
  15. LEPONEX / CLOZARIL [Suspect]
     Dosage: 500 MG, UNK
     Route: 048
     Dates: start: 20110925, end: 20110928
  16. LEPONEX / CLOZARIL [Suspect]
     Dosage: 550 MG, UNK
     Route: 048
     Dates: start: 20110929, end: 20111002
  17. LEPONEX / CLOZARIL [Suspect]
     Dosage: 600 MG, UNK
     Route: 048
     Dates: start: 20111003, end: 20111011
  18. LEPONEX / CLOZARIL [Suspect]
     Dosage: 500 MG, UNK
     Route: 048
     Dates: start: 20111012, end: 20111018
  19. LEPONEX / CLOZARIL [Suspect]
     Dosage: 400 MG, UNK
     Route: 048
     Dates: start: 20111019, end: 20111021
  20. FLUPHENAZINE [Concomitant]
     Dosage: 10 MG, UNK
     Route: 048
     Dates: start: 20110810, end: 20110816
  21. OLANZAPINE [Concomitant]
     Dosage: 10 MG, UNK
     Route: 048
     Dates: start: 20111110, end: 20111115
  22. OLANZAPINE [Concomitant]
     Dosage: 20 MG, UNK
     Route: 048
  23. FLUNITRAZEPAM [Concomitant]
     Indication: SCHIZOPHRENIA, PARANOID TYPE
     Dosage: 4 MG, UNK
     Route: 048
     Dates: start: 20110810, end: 20111129
  24. BIPERIDEN HYDROCHLORIDE [Concomitant]
     Indication: SCHIZOPHRENIA, PARANOID TYPE
     Dosage: 4 MG, UNK
     Route: 048
     Dates: start: 20110810
  25. CLONAZEPAM [Concomitant]
     Indication: SCHIZOPHRENIA, PARANOID TYPE
     Dosage: 4 MG, UNK
     Route: 048
     Dates: start: 20110810, end: 20111003
  26. MAGNESIUM OXIDE [Concomitant]
     Indication: SCHIZOPHRENIA, PARANOID TYPE
     Dosage: 990 MG, UNK
     Route: 048
     Dates: start: 20110810, end: 20111027
  27. LORAZEPAM [Concomitant]
     Indication: SCHIZOPHRENIA, PARANOID TYPE
     Dosage: 2 MG, UNK
     Route: 048
     Dates: start: 20110810

REACTIONS (3)
  - Completed suicide [Fatal]
  - Agranulocytosis [Recovered/Resolved]
  - C-reactive protein increased [Unknown]
